FAERS Safety Report 5027007-8 (Version None)
Quarter: 2006Q2

REPORT INFORMATION
  Report Type: 
  Country: None (occurrence: None)
  Receive Date: 20060612
  Receipt Date: 20060601
  Transmission Date: 20061013
  Serious: Yes (Hospitalization)
  Sender: FDA-Public Use
  Company Number: 2005BI010817

PATIENT
  Age: 44 Year
  Sex: Female

DRUGS (6)
  1. AVONEX [Suspect]
     Indication: MULTIPLE SCLEROSIS
     Dosage: 30 UG; QW; IM
     Route: 030
     Dates: start: 19991203, end: 20050101
  2. AVONEX [Suspect]
     Indication: MULTIPLE SCLEROSIS
     Dosage: 30 UG; QW; IM
     Route: 030
     Dates: start: 20050301
  3. FLOMAX [Concomitant]
  4. TOPROL-XL [Concomitant]
  5. ATIVAN [Concomitant]
  6. AMITRIPTYLINE HCL [Concomitant]

REACTIONS (12)
  - BACK PAIN [None]
  - DELIRIUM [None]
  - DIABETES MELLITUS [None]
  - DIZZINESS [None]
  - HYPOTENSION [None]
  - INCOHERENT [None]
  - KIDNEY INFECTION [None]
  - LUNG INFECTION [None]
  - NEUROPATHY PERIPHERAL [None]
  - SEPSIS [None]
  - URINARY RETENTION [None]
  - URINARY TRACT INFECTION [None]
